FAERS Safety Report 5483563-7 (Version None)
Quarter: 2007Q4

REPORT INFORMATION
  Report Type: 
  Country: None (occurrence: None)
  Receive Date: 20071012
  Receipt Date: 20071005
  Transmission Date: 20080405
  Serious: Yes (Other)
  Sender: FDA-Public Use
  Company Number: US-ASTRAZENECA-2007UW16980

PATIENT
  Age: 52 Year
  Sex: Male
  Weight: 136.1 kg

DRUGS (1)
  1. TOPROL-XL [Suspect]
     Indication: ATRIAL FIBRILLATION
     Route: 048
     Dates: start: 20051001

REACTIONS (8)
  - BREATHING-RELATED SLEEP DISORDER [None]
  - BRONCHIAL DISORDER [None]
  - FATIGUE [None]
  - HYPERSOMNIA [None]
  - PAIN IN EXTREMITY [None]
  - SLEEP APNOEA SYNDROME [None]
  - SOMNOLENCE [None]
  - VARICOSE VEIN [None]
